FAERS Safety Report 14425035 (Version 5)
Quarter: 2018Q3

REPORT INFORMATION
  Report Type: Spontaneous
  Country: PT (occurrence: PT)
  Receive Date: 20180123
  Receipt Date: 20180926
  Transmission Date: 20181010
  Serious: No
  Sender: FDA-Public Use
  Company Number: PT-CONCORDIA PHARMACEUTICALS INC.-GSH201801-000290

PATIENT
  Sex: Female

DRUGS (8)
  1. DEXAMETHASONE ACETATE [Suspect]
     Active Substance: DEXAMETHASONE ACETATE
     Indication: ANTINUCLEAR ANTIBODY POSITIVE
     Route: 065
  2. HYDROXYCHLOROQUINE [Suspect]
     Active Substance: HYDROXYCHLOROQUINE
     Indication: ANTINUCLEAR ANTIBODY POSITIVE
     Route: 065
  3. SALBUTAMOL SULFATE [Suspect]
     Active Substance: ALBUTEROL SULFATE
     Indication: ANTINUCLEAR ANTIBODY POSITIVE
  4. PREDNISOLONE. [Suspect]
     Active Substance: PREDNISOLONE
     Indication: ANTINUCLEAR ANTIBODY POSITIVE
     Route: 065
  5. HYDROXYCHLOROQUINE [Suspect]
     Active Substance: HYDROXYCHLOROQUINE
     Indication: ANTINUCLEAR ANTIBODY POSITIVE
  6. DEXAMETHASONE ACETATE [Suspect]
     Active Substance: DEXAMETHASONE ACETATE
     Indication: ANTINUCLEAR ANTIBODY POSITIVE
  7. PREDNISOLONE. [Suspect]
     Active Substance: PREDNISOLONE
     Indication: ANTINUCLEAR ANTIBODY POSITIVE
  8. SALBUTAMOL SULFATE [Suspect]
     Active Substance: ALBUTEROL SULFATE
     Indication: ANTINUCLEAR ANTIBODY POSITIVE
     Route: 065

REACTIONS (1)
  - Exposure during pregnancy [Unknown]
